FAERS Safety Report 5240450-7 (Version None)
Quarter: 2007Q1

REPORT INFORMATION
  Report Type: 
  Country: None (occurrence: None)
  Receive Date: 20061208
  Receipt Date: 20060403
  Transmission Date: 20070707
  Serious: Yes (Other)
  Sender: FDA-Public Use
  Company Number: 2006UW05839

PATIENT
  Age: 67 Year
  Sex: Female

DRUGS (6)
  1. CRESTOR [Suspect]
     Indication: CEREBROVASCULAR ACCIDENT
     Dosage: 5 MG PO
     Route: 048
     Dates: start: 20060301
  2. CRESTOR [Suspect]
     Indication: MYOCARDIAL INFARCTION
     Dosage: 5 MG PO
     Route: 048
     Dates: start: 20060301
  3. ATENOLOL [Concomitant]
  4. DETROL [Concomitant]
  5. LISINOPRIL [Concomitant]
  6. METFORMIN HCL [Concomitant]

REACTIONS (3)
  - ABDOMINAL PAIN UPPER [None]
  - NAUSEA [None]
  - VISION BLURRED [None]
